FAERS Safety Report 12255144 (Version 3)
Quarter: 2017Q4

REPORT INFORMATION
  Report Type: Report from Study
  Country: FR (occurrence: FR)
  Receive Date: 20160411
  Receipt Date: 20171127
  Transmission Date: 20180320
  Serious: No
  Sender: FDA-Public Use
  Company Number: FR-ROCHE-1739305

PATIENT
  Age: 73 Year
  Sex: Female

DRUGS (4)
  1. RANIBIZUMAB. [Suspect]
     Active Substance: RANIBIZUMAB
     Dosage: RIGHT EYE
     Route: 031
     Dates: start: 20150716
  2. RANIBIZUMAB. [Suspect]
     Active Substance: RANIBIZUMAB
     Dosage: RIGHT EYE
     Route: 031
     Dates: start: 20150904
  3. RANIBIZUMAB. [Suspect]
     Active Substance: RANIBIZUMAB
     Dosage: RIGHT EYE
     Route: 031
     Dates: start: 20150616
  4. RANIBIZUMAB. [Suspect]
     Active Substance: RANIBIZUMAB
     Indication: AGE-RELATED MACULAR DEGENERATION
     Dosage: RIGHT EYE
     Route: 031
     Dates: start: 20150520, end: 20150520

REACTIONS (2)
  - No adverse event [Unknown]
  - Inappropriate schedule of drug administration [Unknown]
